FAERS Safety Report 23482688 (Version 1)
Quarter: 2024Q1

REPORT INFORMATION
  Report Type: Spontaneous
  Country: US (occurrence: None)
  Receive Date: 20240205
  Receipt Date: 20240205
  Transmission Date: 20240410
  Serious: No
  Sender: FDA-Public Use
  Company Number: 2024A028231

PATIENT
  Sex: Female

DRUGS (43)
  1. NEXIUM [Suspect]
     Active Substance: ESOMEPRAZOLE MAGNESIUM
     Indication: Product used for unknown indication
     Dosage: UNK
  2. NEXIUM [Suspect]
     Active Substance: ESOMEPRAZOLE MAGNESIUM
     Indication: Gastrooesophageal reflux disease
     Dosage: 40 MG, QD
     Dates: start: 20090406
  3. SYMBICORT [Suspect]
     Active Substance: BUDESONIDE\FORMOTEROL FUMARATE DIHYDRATE
     Indication: Asthma
     Dosage: UNKNOWN UNKNOWN
     Dates: start: 20171124
  4. SYMBICORT [Suspect]
     Active Substance: BUDESONIDE\FORMOTEROL FUMARATE DIHYDRATE
     Indication: Wheezing
     Dosage: UNKNOWN UNKNOWN
     Dates: start: 20171124
  5. SYMBICORT [Suspect]
     Active Substance: BUDESONIDE\FORMOTEROL FUMARATE DIHYDRATE
     Indication: Dyspnoea
     Dosage: UNKNOWN UNKNOWN
     Dates: start: 20171124
  6. SYMBICORT [Suspect]
     Active Substance: BUDESONIDE\FORMOTEROL FUMARATE DIHYDRATE
     Indication: Asthma
     Dosage: UNKNOWN UNKNOWN
  7. SYMBICORT [Suspect]
     Active Substance: BUDESONIDE\FORMOTEROL FUMARATE DIHYDRATE
     Indication: Wheezing
     Dosage: UNKNOWN UNKNOWN
  8. SYMBICORT [Suspect]
     Active Substance: BUDESONIDE\FORMOTEROL FUMARATE DIHYDRATE
     Indication: Dyspnoea
     Dosage: UNKNOWN UNKNOWN
  9. SYMBICORT [Suspect]
     Active Substance: BUDESONIDE\FORMOTEROL FUMARATE DIHYDRATE
     Indication: Asthma
     Dosage: UNKNOWN UNKNOWN
  10. SYMBICORT [Suspect]
     Active Substance: BUDESONIDE\FORMOTEROL FUMARATE DIHYDRATE
     Indication: Wheezing
     Dosage: UNKNOWN UNKNOWN
  11. SYMBICORT [Suspect]
     Active Substance: BUDESONIDE\FORMOTEROL FUMARATE DIHYDRATE
     Indication: Dyspnoea
     Dosage: UNKNOWN UNKNOWN
  12. MOTRIN [Suspect]
     Active Substance: IBUPROFEN
     Indication: Product used for unknown indication
     Dosage: UNK
  13. FLONASE ALLERGY RELIEF [Suspect]
     Active Substance: FLUTICASONE PROPIONATE
     Indication: Product used for unknown indication
     Dosage: UNK
  14. FLONASE [Suspect]
     Active Substance: FLUTICASONE PROPIONATE
     Indication: Product used for unknown indication
     Dosage: UNK
  15. PFIZER-BIONTECH COVID-19 VACCINE [Suspect]
     Active Substance: TOZINAMERAN
     Indication: Product used for unknown indication
     Dosage: UNK
  16. SINGULAIR [Suspect]
     Active Substance: MONTELUKAST SODIUM
     Indication: Product used for unknown indication
     Dosage: UNK
  17. VITAMIN D3 [Suspect]
     Active Substance: CHOLECALCIFEROL
     Indication: Product used for unknown indication
     Dosage: UNK
  18. FLONASE ALLERGY RELIEF [Suspect]
     Active Substance: FLUTICASONE PROPIONATE
     Indication: Asthma
     Dosage: 2 DF, QD
     Dates: start: 20131216
  19. FLONASE ALLERGY RELIEF [Suspect]
     Active Substance: FLUTICASONE PROPIONATE
     Indication: Nasal inflammation
     Dosage: 2 DF, QD
     Dates: start: 20131216
  20. PFIZER-BIONTECH COVID-19 VACCINE [Suspect]
     Active Substance: TOZINAMERAN
     Indication: COVID-19 prophylaxis
     Dosage: UNK
     Route: 030
     Dates: start: 20210202
  21. MOTRIN [Suspect]
     Active Substance: IBUPROFEN
     Indication: Spinal pain
     Dosage: UNK (2 TO 3 DAYS PER DAY)
  22. TYLENOL [Suspect]
     Active Substance: ACETAMINOPHEN
     Indication: Myalgia
     Dosage: UNK (1 TO 2 PER DOSE)
  23. ASMANEX [Suspect]
     Active Substance: MOMETASONE FUROATE
     Indication: Asthma
     Dosage: 1 PUFF(S), QD
     Route: 055
     Dates: start: 20100311
  24. ASMANEX [Suspect]
     Active Substance: MOMETASONE FUROATE
     Indication: Wheezing
     Dosage: 1 PUFF(S), QD
     Route: 055
     Dates: start: 20100311
  25. ASMANEX [Suspect]
     Active Substance: MOMETASONE FUROATE
     Indication: Dyspnoea
     Dosage: 1 PUFF(S), QD
     Route: 055
     Dates: start: 20100311
  26. ASMANEX [Suspect]
     Active Substance: MOMETASONE FUROATE
     Indication: Swelling
     Dosage: 1 PUFF(S), QD
     Route: 055
     Dates: start: 20100311
  27. ASMANEX [Suspect]
     Active Substance: MOMETASONE FUROATE
     Indication: Asthma
     Dosage: 1 PUFF(S), QD
     Route: 055
     Dates: start: 20171124
  28. ASMANEX [Suspect]
     Active Substance: MOMETASONE FUROATE
     Indication: Wheezing
     Dosage: 1 PUFF(S), QD
     Route: 055
     Dates: start: 20171124
  29. ASMANEX [Suspect]
     Active Substance: MOMETASONE FUROATE
     Indication: Dyspnoea
     Dosage: 1 PUFF(S), QD
     Route: 055
     Dates: start: 20171124
  30. ASMANEX [Suspect]
     Active Substance: MOMETASONE FUROATE
     Indication: Swelling
     Dosage: 1 PUFF(S), QD
     Route: 055
     Dates: start: 20171124
  31. ASMANEX [Suspect]
     Active Substance: MOMETASONE FUROATE
     Indication: Asthma
  32. ASMANEX [Suspect]
     Active Substance: MOMETASONE FUROATE
     Indication: Wheezing
  33. ASMANEX [Suspect]
     Active Substance: MOMETASONE FUROATE
     Indication: Dyspnoea
  34. ASMANEX [Suspect]
     Active Substance: MOMETASONE FUROATE
     Indication: Swelling
  35. BREO ELLIPTA [Suspect]
     Active Substance: FLUTICASONE FUROATE\VILANTEROL TRIFENATATE
     Indication: Asthma
     Dosage: UNK
     Dates: start: 20171124
  36. BREO ELLIPTA [Suspect]
     Active Substance: FLUTICASONE FUROATE\VILANTEROL TRIFENATATE
     Indication: Wheezing
     Dosage: UNK
     Dates: start: 20171124
  37. BREO ELLIPTA [Suspect]
     Active Substance: FLUTICASONE FUROATE\VILANTEROL TRIFENATATE
     Indication: Dyspnoea
     Dosage: UNK
     Dates: start: 20171124
  38. BREO ELLIPTA [Suspect]
     Active Substance: FLUTICASONE FUROATE\VILANTEROL TRIFENATATE
     Indication: Asthma
  39. BREO ELLIPTA [Suspect]
     Active Substance: FLUTICASONE FUROATE\VILANTEROL TRIFENATATE
     Indication: Wheezing
  40. BREO ELLIPTA [Suspect]
     Active Substance: FLUTICASONE FUROATE\VILANTEROL TRIFENATATE
     Indication: Dyspnoea
  41. BREO ELLIPTA [Suspect]
     Active Substance: FLUTICASONE FUROATE\VILANTEROL TRIFENATATE
     Indication: Asthma
  42. BREO ELLIPTA [Suspect]
     Active Substance: FLUTICASONE FUROATE\VILANTEROL TRIFENATATE
     Indication: Wheezing
  43. BREO ELLIPTA [Suspect]
     Active Substance: FLUTICASONE FUROATE\VILANTEROL TRIFENATATE
     Indication: Dyspnoea

REACTIONS (5)
  - Headache [Unknown]
  - Chills [Unknown]
  - Dyspepsia [Unknown]
  - Fatigue [Unknown]
  - Pain [Unknown]
